FAERS Safety Report 10501504 (Version 1)
Quarter: 2014Q4

REPORT INFORMATION
  Report Type: Spontaneous
  Country: US (occurrence: None)
  Receive Date: 20141006
  Receipt Date: 20141006
  Transmission Date: 20150528
  Serious: No
  Sender: FDA-Public Use
  Company Number: None

PATIENT
  Age: 9 Year
  Sex: Female
  Weight: 28.58 kg

DRUGS (1)
  1. TAMIFLU [Suspect]
     Active Substance: OSELTAMIVIR PHOSPHATE
     Indication: INFLUENZA
     Dosage: 2 TSP  ONCE DAILY TAKEN BY MOUTH
     Route: 048
     Dates: start: 20140927, end: 20141003

REACTIONS (2)
  - Dysgeusia [None]
  - Decreased appetite [None]

NARRATIVE: CASE EVENT DATE: 20141001
